FAERS Safety Report 9044168 (Version 1)
Quarter: 2013Q1

REPORT INFORMATION
  Report Type: Report from Study
  Country: US (occurrence: US)
  Receive Date: 20130130
  Receipt Date: 20130130
  Transmission Date: 20140127
  Serious: No
  Sender: FDA-Public Use
  Company Number: US-ABBOTT-12P-163-0955256-00

PATIENT
  Age: 47 Year
  Sex: Female

DRUGS (11)
  1. HUMIRA 40 MG/0.8 ML PEN [Suspect]
     Indication: RHEUMATOID ARTHRITIS
     Dates: start: 20120618
  2. LYRICA [Concomitant]
     Indication: FIBROMYALGIA
  3. LAMICTAL [Concomitant]
     Indication: DEPRESSION
  4. ZOLOFT [Concomitant]
     Indication: DEPRESSION
  5. PLAQUENIL [Concomitant]
     Indication: ARTHRITIS
  6. ARAVA [Concomitant]
     Indication: ARTHRITIS
  7. ESTRADIOL [Concomitant]
     Indication: HORMONE REPLACEMENT THERAPY
  8. IBUPROFEN [Concomitant]
     Indication: PAIN
  9. DHEA [Concomitant]
     Indication: HORMONE REPLACEMENT THERAPY
  10. CALCIUM +D [Concomitant]
     Indication: VITAMIN SUPPLEMENTATION
  11. ALLEGRA [Concomitant]
     Indication: HYPERSENSITIVITY

REACTIONS (3)
  - Somnolence [Not Recovered/Not Resolved]
  - Fatigue [Not Recovered/Not Resolved]
  - Arthralgia [Not Recovered/Not Resolved]
